FAERS Safety Report 21410945 (Version 7)
Quarter: 2025Q3

REPORT INFORMATION
  Report Type: Spontaneous
  Country: JP (occurrence: JP)
  Receive Date: 20221005
  Receipt Date: 20250803
  Transmission Date: 20251020
  Serious: Yes (Other)
  Sender: ALEXION PHARMACEUTICALS
  Company Number: 2022A335593

PATIENT
  Age: 73 Year
  Sex: Male

DRUGS (3)
  1. LYNPARZA [Suspect]
     Active Substance: OLAPARIB
     Indication: Hormone-refractory prostate cancer
     Dosage: 200 MILLIGRAM, BID
     Dates: start: 20210621
  2. LYNPARZA [Suspect]
     Active Substance: OLAPARIB
     Dosage: NUMBER OF SEPARATE DOSAGES UNKNOWN
  3. LYNPARZA [Suspect]
     Active Substance: OLAPARIB
     Dosage: NUMBER OF SEPARATE DOSAGES UNKNOWN

REACTIONS (2)
  - Anaemia [Unknown]
  - Nausea [Unknown]
